FAERS Safety Report 17427510 (Version 1)
Quarter: 2020Q1

REPORT INFORMATION
  Report Type: Report from Study
  Country: CO (occurrence: CO)
  Receive Date: 20200217
  Receipt Date: 20200217
  Transmission Date: 20200409
  Serious: Yes (Hospitalization)
  Sender: FDA-Public Use
  Company Number: NVSC2020CO039686

PATIENT
  Age: 66 Year
  Sex: Male

DRUGS (1)
  1. REVOLADE [Suspect]
     Active Substance: ELTROMBOPAG
     Indication: THROMBOCYTOPENIC PURPURA
     Dosage: 50 MG, QD
     Route: 048

REACTIONS (4)
  - Platelet count decreased [Unknown]
  - Haemoglobin decreased [Unknown]
  - Drug ineffective [Unknown]
  - Aspiration bone marrow abnormal [Unknown]

NARRATIVE: CASE EVENT DATE: 20200211
